FAERS Safety Report 11950199 (Version 1)
Quarter: 2016Q1

REPORT INFORMATION
  Report Type: Spontaneous
  Country: US (occurrence: US)
  Receive Date: 20160126
  Receipt Date: 20160126
  Transmission Date: 20160526
  Serious: Yes (Hospitalization, Other)
  Sender: FDA-Public Use
  Company Number: US-DSJP-DSU-2015-133560

PATIENT

DRUGS (3)
  1. LISINOPRIL HCTZ [Concomitant]
     Active Substance: HYDROCHLOROTHIAZIDE\LISINOPRIL
     Indication: PRODUCT USED FOR UNKNOWN INDICATION
  2. HYDROCODONE [Concomitant]
     Active Substance: HYDROCODONE
     Indication: PRODUCT USED FOR UNKNOWN INDICATION
  3. BENICAR HCT [Suspect]
     Active Substance: HYDROCHLOROTHIAZIDE\OLMESARTAN MEDOXOMIL
     Indication: HYPERTENSION
     Dosage: 40/25MG, QD (2 PER DAY)
     Dates: start: 2008, end: 2014

REACTIONS (12)
  - Hydronephrosis [Unknown]
  - Drug administration error [Recovered/Resolved]
  - Acute kidney injury [Unknown]
  - Incontinence [Unknown]
  - Proctalgia [Unknown]
  - Chronic kidney disease [Not Recovered/Not Resolved]
  - Lower gastrointestinal haemorrhage [Unknown]
  - Anal fissure [Unknown]
  - Chest pain [Unknown]
  - Malabsorption [Unknown]
  - Diverticulum [Unknown]
  - Gastrointestinal haemorrhage [Unknown]

NARRATIVE: CASE EVENT DATE: 2008
